FAERS Safety Report 10401365 (Version 2)
Quarter: 2014Q3

REPORT INFORMATION
  Report Type: Spontaneous
  Country: US (occurrence: PL)
  Receive Date: 20140822
  Receipt Date: 20140911
  Transmission Date: 20150326
  Serious: Yes (Other)
  Sender: FDA-Public Use
  Company Number: 2014SP004836

PATIENT
  Age: 62 Year
  Sex: Female
  Weight: 50 kg

DRUGS (6)
  1. METHOTREXATE [Suspect]
     Active Substance: METHOTREXATE
     Indication: RHEUMATOID ARTHRITIS
     Route: 030
     Dates: start: 20090901
  2. NASEN [Concomitant]
     Indication: INSOMNIA
     Route: 048
     Dates: start: 20111107
  3. EUTHYROX [Concomitant]
     Active Substance: LEVOTHYROXINE SODIUM
     Indication: HYPOTHYROIDISM
     Route: 048
     Dates: start: 20110330
  4. TOFACITINIB CITRATE [Suspect]
     Active Substance: TOFACITINIB CITRATE
     Indication: RHEUMATOID ARTHRITIS
     Route: 048
     Dates: start: 20110223, end: 20140710
  5. FOLIC ACID. [Concomitant]
     Active Substance: FOLIC ACID
     Indication: RHEUMATOID ARTHRITIS
     Route: 048
     Dates: start: 20090901
  6. LORISTA HD [Concomitant]
     Indication: HYPERTENSION
     Route: 048
     Dates: start: 20120214

REACTIONS (2)
  - Lymphoma [Unknown]
  - Splenic neoplasm malignancy unspecified [Unknown]

NARRATIVE: CASE EVENT DATE: 20140512
